FAERS Safety Report 25275967 (Version 2)
Quarter: 2025Q3

REPORT INFORMATION
  Report Type: Spontaneous
  Country: US (occurrence: US)
  Receive Date: 20250507
  Receipt Date: 20250726
  Transmission Date: 20251021
  Serious: No
  Sender: TEVA
  Company Number: US-TEVA-VS-3325324

PATIENT
  Age: 70 Year
  Sex: Male

DRUGS (3)
  1. AUSTEDO [Suspect]
     Active Substance: DEUTETRABENAZINE
     Indication: Orthostatic headache
     Route: 048
     Dates: start: 202401
  2. AUSTEDO [Suspect]
     Active Substance: DEUTETRABENAZINE
     Indication: Orthostatic headache
     Dosage: 2 TABLETS BY MOUTH TWICE DAILY
     Route: 048
     Dates: start: 2025, end: 2025
  3. AUSTEDO [Suspect]
     Active Substance: DEUTETRABENAZINE
     Indication: Orthostatic headache
     Dosage: 9 MG, 3 TABLETS BY MOUTH IN THE MORNING + 2 TABLETS IN THE EVENING FOR A TOTAL DAILY DOSE OF 45 M...
     Route: 048
     Dates: start: 2025

REACTIONS (3)
  - Drug ineffective for unapproved indication [Unknown]
  - Off label use [Unknown]
  - Drug ineffective [Unknown]

NARRATIVE: CASE EVENT DATE: 20240101
